FAERS Safety Report 17130524 (Version 4)
Quarter: 2020Q1

REPORT INFORMATION
  Report Type: Other
  Country: US (occurrence: US)
  Receive Date: 20191209
  Receipt Date: 20200325
  Transmission Date: 20200409
  Serious: Yes (Death, Life-Threatening)
  Sender: FDA-Public Use
  Company Number: US-LA JOLLA PHARMACEUTICAL COMPANY-0000331

PATIENT

DRUGS (31)
  1. VASOPRESSIN. [Concomitant]
     Active Substance: VASOPRESSIN
     Dosage: 0.03 UNITS, QH (EACH HOUR)
     Route: 042
     Dates: start: 20191124
  2. ROCURONIUM [Concomitant]
     Active Substance: ROCURONIUM BROMIDE
     Dosage: UNK
  3. GIAPREZA [Suspect]
     Active Substance: ANGIOTENSIN II
     Indication: SEPTIC SHOCK
     Dosage: 25 NG/KG/MIN, UNK
     Dates: start: 20191124, end: 20191125
  4. GIAPREZA [Suspect]
     Active Substance: ANGIOTENSIN II
     Dosage: 55 NG/KG/MIN, UNK
     Dates: start: 20191125, end: 20191125
  5. FENTANYL. [Concomitant]
     Active Substance: FENTANYL
     Dosage: UNK
  6. KETAMINE [Concomitant]
     Active Substance: KETAMINE
     Dosage: UNK
  7. CALCIUM GLUCONATE. [Concomitant]
     Active Substance: CALCIUM GLUCONATE
     Dosage: UNK
  8. PIPERACILLIN/TAZOBACTAM [Concomitant]
     Active Substance: PIPERACILLIN SODIUM\TAZOBACTAM SODIUM
     Dosage: UNK
  9. CHLORHEXIDINE GLUCONATE. [Concomitant]
     Active Substance: CHLORHEXIDINE GLUCONATE
     Dosage: UNK
  10. VANCOMYCIN [Concomitant]
     Active Substance: VANCOMYCIN
     Dosage: UNK
  11. LAMOTRIGINE. [Concomitant]
     Active Substance: LAMOTRIGINE
     Dosage: UNK
  12. QUETIAPINE. [Concomitant]
     Active Substance: QUETIAPINE
     Dosage: 125 MG, QHS (BEDTIME)
     Route: 048
  13. HEPARIN [Concomitant]
     Active Substance: HEPARIN SODIUM
  14. EPINEPHRINE. [Concomitant]
     Active Substance: EPINEPHRINE
     Dosage: UNK (1-10 MCG/MIN)
     Route: 042
     Dates: start: 20191124, end: 20191125
  15. SODIUM BICARBONATE. [Concomitant]
     Active Substance: SODIUM BICARBONATE
     Dosage: UNK
  16. INSULIN LISPRO [Concomitant]
     Active Substance: INSULIN LISPRO
     Dosage: UNK
  17. LEVOTHYROXINE. [Concomitant]
     Active Substance: LEVOTHYROXINE
     Dosage: UNK
  18. MEROPENEM. [Concomitant]
     Active Substance: MEROPENEM
     Dosage: UNK
  19. LISINOPRIL. [Concomitant]
     Active Substance: LISINOPRIL
     Dosage: UNK
  20. PRAZOSIN. [Concomitant]
     Active Substance: PRAZOSIN
     Dosage: 2 MG, QHS (BEDTIME)
     Route: 048
  21. SIMVASTATIN. [Concomitant]
     Active Substance: SIMVASTATIN
     Dosage: UNK
  22. LACTATED RINGERS SOLUTION [Concomitant]
     Active Substance: CALCIUM CHLORIDE\POTASSIUM CHLORIDE\SODIUM CHLORIDE\SODIUM LACTATE
     Dosage: UNK
  23. SODIUM CHLORIDE. [Concomitant]
     Active Substance: SODIUM CHLORIDE
  24. NOREPINEPHRINE. [Concomitant]
     Active Substance: NOREPINEPHRINE
     Dosage: UNK (0.5-3.5 MCG/MIN)
     Route: 042
     Dates: start: 20191124
  25. FAMOTIDINE. [Concomitant]
     Active Substance: FAMOTIDINE
     Dosage: UNK
  26. HYDROCORTISONE. [Concomitant]
     Active Substance: HYDROCORTISONE
     Dosage: UNK
  27. DUONEB [Concomitant]
     Active Substance: ALBUTEROL SULFATE\IPRATROPIUM BROMIDE
     Dosage: UNK
  28. PROPOFOL. [Concomitant]
     Active Substance: PROPOFOL
     Dosage: UNK
  29. IPRATROPIUM/ALBUTEROL [Concomitant]
     Active Substance: ALBUTEROL\IPRATROPIUM
     Dosage: UNK
  30. ACETAMINOPHEN. [Concomitant]
     Active Substance: ACETAMINOPHEN
     Dosage: UNK
  31. MUPIROCIN. [Concomitant]
     Active Substance: MUPIROCIN
     Dosage: UNK

REACTIONS (6)
  - Acute myocardial infarction [Fatal]
  - Mean arterial pressure increased [Fatal]
  - Heart rate irregular [Fatal]
  - Ventricular tachycardia [Fatal]
  - Cardiogenic shock [Fatal]
  - Cardiac arrest [Fatal]

NARRATIVE: CASE EVENT DATE: 20191125
